FAERS Safety Report 5216164-6 (Version None)
Quarter: 2007Q1

REPORT INFORMATION
  Report Type: 
  Country: None (occurrence: None)
  Receive Date: 20070118
  Receipt Date: 20070104
  Transmission Date: 20070707
  Serious: Yes (Other)
  Sender: FDA-Public Use
  Company Number: 2007US-05062

PATIENT
  Age: 20 Year
  Sex: Female

DRUGS (2)
  1. ISOTRETINOIN [Suspect]
     Indication: ACNE
     Dosage: 30 MG, BID,
     Dates: start: 20060901, end: 20061116
  2. YASMIN [Concomitant]

REACTIONS (5)
  - ARTHRALGIA [None]
  - DIZZINESS [None]
  - HEADACHE [None]
  - NAUSEA [None]
  - URINARY TRACT INFECTION [None]
